FAERS Safety Report 17275092 (Version 2)
Quarter: 2020Q1

REPORT INFORMATION
  Report Type: Report from Study
  Country: None (occurrence: US)
  Receive Date: 20200116
  Receipt Date: 20200221
  Transmission Date: 20200409
  Serious: Yes (Hospitalization)
  Sender: FDA-Public Use
  Company Number: US-ABBVIE-20P-163-3230436-00

PATIENT
  Age: 88 Year
  Sex: Female
  Weight: 66.28 kg

DRUGS (1)
  1. IMBRUVICA [Suspect]
     Active Substance: IBRUTINIB
     Indication: CHRONIC LYMPHOCYTIC LEUKAEMIA
     Route: 048
     Dates: start: 20191022, end: 20200113

REACTIONS (6)
  - Diarrhoea haemorrhagic [Unknown]
  - Colitis [Unknown]
  - Hypoglycaemia [Recovered/Resolved]
  - Diabetes mellitus [Recovered/Resolved]
  - Hypotension [Recovered/Resolved]
  - Abdominal pain upper [Unknown]

NARRATIVE: CASE EVENT DATE: 20191214
